FAERS Safety Report 5192038-4 (Version None)
Quarter: 2006Q4

REPORT INFORMATION
  Report Type: 
  Country: None (occurrence: None)
  Receive Date: 20061220
  Receipt Date: 20061208
  Transmission Date: 20070319
  Serious: Yes (Other)
  Sender: FDA-Public Use
  Company Number: 2006152242

PATIENT
  Sex: Female

DRUGS (1)
  1. LYRICA [Suspect]
     Indication: NEURALGIA
     Dosage: ORAL
     Route: 048
     Dates: start: 20060102, end: 20061201

REACTIONS (5)
  - CONFUSIONAL STATE [None]
  - DYSGRAPHIA [None]
  - FEELING DRUNK [None]
  - MEMORY IMPAIRMENT [None]
  - MUSCLE TWITCHING [None]
